FAERS Safety Report 16590333 (Version 2)
Quarter: 2019Q3

REPORT INFORMATION
  Report Type: Spontaneous
  Country: US (occurrence: US)
  Receive Date: 20190718
  Receipt Date: 20190808
  Transmission Date: 20191004
  Serious: Yes (Other)
  Sender: FDA-Public Use
  Company Number: US-IPSEN BIOPHARMACEUTICALS, INC.-2018-14720

PATIENT
  Age: 77 Year
  Sex: Male

DRUGS (31)
  1. CETIRIZINE [Concomitant]
     Active Substance: CETIRIZINE HYDROCHLORIDE
  2. VITAMIN C [Concomitant]
     Active Substance: ASCORBIC ACID
  3. XERMELO [Suspect]
     Active Substance: TELOTRISTAT ETHYL
     Route: 048
     Dates: start: 20190525
  4. CALCIUM [Concomitant]
     Active Substance: CALCIUM
  5. FISH OIL [Concomitant]
     Active Substance: FISH OIL
  6. FLUTICASONE PROPIONATE. [Concomitant]
     Active Substance: FLUTICASONE PROPIONATE
  7. JANUVIA [Concomitant]
     Active Substance: SITAGLIPTIN PHOSPHATE
  8. IRON [Concomitant]
     Active Substance: IRON
  9. SIMVASTATIN. [Concomitant]
     Active Substance: SIMVASTATIN
  10. TYLENOL [Concomitant]
     Active Substance: ACETAMINOPHEN
  11. VITAMIN D3 [Concomitant]
     Active Substance: CHOLECALCIFEROL
  12. DONEPEZIL. [Concomitant]
     Active Substance: DONEPEZIL
  13. XERMELO [Suspect]
     Active Substance: TELOTRISTAT ETHYL
     Route: 048
     Dates: start: 2019
  14. FOLIC ACID. [Concomitant]
     Active Substance: FOLIC ACID
  15. METOPROLOL TARTRATE. [Concomitant]
     Active Substance: METOPROLOL TARTRATE
  16. PARICALCITOL. [Concomitant]
     Active Substance: PARICALCITOL
  17. VITAMIN B12 [Concomitant]
     Active Substance: CYANOCOBALAMIN
  18. LOSARTAN. [Concomitant]
     Active Substance: LOSARTAN
  19. XERMELO [Suspect]
     Active Substance: TELOTRISTAT ETHYL
     Indication: CARCINOID SYNDROME
     Route: 048
     Dates: start: 20171003
  20. COMBIVENT RESPIMAT [Concomitant]
     Active Substance: ALBUTEROL SULFATE\IPRATROPIUM BROMIDE
  21. NITROSTAT [Concomitant]
     Active Substance: NITROGLYCERIN
  22. INSULIN CARTRIDGE [Concomitant]
  23. LANREOTIDE [Concomitant]
     Active Substance: LANREOTIDE
     Route: 058
     Dates: start: 20160520
  24. ASCRIPTIN [Concomitant]
     Active Substance: ASPIRIN
  25. BUMETANIDE. [Concomitant]
     Active Substance: BUMETANIDE
  26. KLOR-CON [Concomitant]
     Active Substance: POTASSIUM CHLORIDE
  27. BIOTIN [Concomitant]
     Active Substance: BIOTIN
  28. DIPHENHYDRAM [Concomitant]
  29. HYDROCODONE BITARTRATE. [Concomitant]
     Active Substance: HYDROCODONE BITARTRATE
  30. ISOSORBIDE MONONITRATE. [Concomitant]
     Active Substance: ISOSORBIDE MONONITRATE
  31. NIASPAN [Concomitant]
     Active Substance: NIACIN

REACTIONS (7)
  - Ligament sprain [Unknown]
  - Haemoglobin decreased [Not Recovered/Not Resolved]
  - Oedema peripheral [Not Recovered/Not Resolved]
  - Fall [Unknown]
  - Furuncle [Not Recovered/Not Resolved]
  - Musculoskeletal pain [Not Recovered/Not Resolved]
  - Off label use [Unknown]

NARRATIVE: CASE EVENT DATE: 20171003
